FAERS Safety Report 6055399-X (Version None)
Quarter: 2009Q1

REPORT INFORMATION
  Report Type: 
  Country: None (occurrence: None)
  Receive Date: 20090128
  Receipt Date: 20090122
  Transmission Date: 20090719
  Serious: Yes (Other)
  Sender: FDA-Public Use
  Company Number: US-JNJFOC-20090106160

PATIENT
  Sex: Female
  Weight: 81.65 kg

DRUGS (1)
  1. ORTHO TRI-CYCLEN LO [Suspect]
     Indication: CONTRACEPTION
     Route: 048

REACTIONS (4)
  - ELECTROENCEPHALOGRAM ABNORMAL [None]
  - HEADACHE [None]
  - OROPHARYNGEAL PAIN [None]
  - VISUAL IMPAIRMENT [None]
